FAERS Safety Report 21782233 (Version 3)
Quarter: 2023Q1

REPORT INFORMATION
  Report Type: Report from Study
  Country: JP (occurrence: JP)
  Receive Date: 20221227
  Receipt Date: 20230112
  Transmission Date: 20230418
  Serious: Yes (Hospitalization)
  Sender: FDA-Public Use
  Company Number: JP-TAIHO-2022-003485

PATIENT
  Age: 54 Year
  Sex: Male
  Weight: 44.9 kg

DRUGS (2)
  1. FUTIBATINIB [Suspect]
     Active Substance: FUTIBATINIB
     Indication: Oesophageal carcinoma
     Dosage: CYCLE 1
     Route: 048
     Dates: start: 20221206, end: 20221224
  2. PEMBROLIZUMAB [Suspect]
     Active Substance: PEMBROLIZUMAB
     Indication: Oesophageal carcinoma
     Dosage: DAILY DOSE: 200 MILLIGRAM(S)
     Route: 042
     Dates: start: 20221206, end: 20221206

REACTIONS (1)
  - Pneumonia [Not Recovered/Not Resolved]

NARRATIVE: CASE EVENT DATE: 20221226
